FAERS Safety Report 4336955-3 (Version None)
Quarter: 2004Q2

REPORT INFORMATION
  Report Type: 
  Country: None (occurrence: None)
  Receive Date: 20040408
  Receipt Date: 20040324
  Transmission Date: 20050107
  Serious: Yes (Death, Other)
  Sender: FDA-Public Use
  Company Number: USA-2004-0013068

PATIENT
  Age: 60 Year
  Sex: Female
  Weight: 74.8 kg

DRUGS (9)
  1. OXYCONTIN [Suspect]
     Indication: PAIN
     Dosage: 20 MG, Q12H, PRN
     Dates: start: 20030707, end: 20031222
  2. WELLBUTRIN [Concomitant]
  3. LEXAPRO [Concomitant]
  4. PRILOSEC [Concomitant]
  5. TEMAZEPAM [Concomitant]
  6. LISINOPRIL [Concomitant]
  7. RISPERDAL [Concomitant]
  8. COMBIVENT (SALBUTAMOL SULFATE, IPRATROPIUM BROMIDE) [Concomitant]
  9. NORVASC [Concomitant]

REACTIONS (5)
  - ACUTE RESPIRATORY DISTRESS SYNDROME [None]
  - DISEASE PROGRESSION [None]
  - HEPATIC CIRRHOSIS [None]
  - PNEUMONIA [None]
  - VIRAL INFECTION [None]
